FAERS Safety Report 16984552 (Version 3)
Quarter: 2019Q4

REPORT INFORMATION
  Report Type: Spontaneous
  Country: US (occurrence: US)
  Receive Date: 20191101
  Receipt Date: 20191204
  Transmission Date: 20200122
  Serious: No
  Sender: FDA-Public Use
  Company Number: US-PFIZER INC-2019468488

PATIENT
  Age: 69 Year
  Sex: Female
  Weight: 58.6 kg

DRUGS (3)
  1. ESTRING [Suspect]
     Active Substance: ESTRADIOL
     Indication: VULVOVAGINAL BURNING SENSATION
  2. ESTRING [Suspect]
     Active Substance: ESTRADIOL
     Indication: VULVOVAGINAL DRYNESS
     Dosage: 2 MG, UNK
     Route: 067
  3. ESTRING [Suspect]
     Active Substance: ESTRADIOL
     Indication: VULVOVAGINAL ERYTHEMA

REACTIONS (10)
  - Weight increased [Unknown]
  - Memory impairment [Unknown]
  - Feeling abnormal [Unknown]
  - Vulvovaginal pain [Unknown]
  - Intentional product use issue [Unknown]
  - Anxiety [Unknown]
  - Dyspareunia [Unknown]
  - Drug ineffective [Unknown]
  - Road traffic accident [Unknown]
  - Incorrect product administration duration [Unknown]

NARRATIVE: CASE EVENT DATE: 201707
